FAERS Safety Report 5625374-5 (Version None)
Quarter: 2008Q1

REPORT INFORMATION
  Report Type: 
  Country: None (occurrence: None)
  Receive Date: 20080211
  Receipt Date: 20080204
  Transmission Date: 20080703
  Serious: Yes (Death)
  Sender: FDA-Public Use
  Company Number: 2008-00776

PATIENT
  Age: 43 Year
  Sex: Female

DRUGS (3)
  1. CLONAZEPAM [Suspect]
  2. HYDROCODONE BITARTRATE [Suspect]
  3. TRAZODONE HYDROCHLORIDE [Suspect]

REACTIONS (1)
  - DEATH [None]
